FAERS Safety Report 7118901-2 (Version None)
Quarter: 2010Q4

REPORT INFORMATION
  Report Type: 
  Country: None (occurrence: None)
  Receive Date: 20101123
  Receipt Date: 20101117
  Transmission Date: 20110411
  Serious: Yes (Life-Threatening, Other)
  Sender: FDA-Public Use
  Company Number: JP-ROCHE-588167

PATIENT
  Sex: Male
  Weight: 55.6 kg

DRUGS (9)
  1. AVASTIN [Suspect]
     Indication: COLON CANCER METASTATIC
     Dosage: STRENGTH REPORTED AS 400 MG/16 ML
     Route: 041
     Dates: start: 20080728, end: 20080728
  2. TOPOTECAN [Concomitant]
     Route: 041
     Dates: start: 20080728, end: 20080728
  3. FLUOROURACIL [Concomitant]
     Route: 041
     Dates: start: 20080728, end: 20080728
  4. ISOVORIN [Concomitant]
     Route: 041
     Dates: start: 20080728, end: 20080728
  5. DEXART [Concomitant]
     Dosage: ROUTE REPORTED AS: INJECTABLE (NOS)
     Route: 050
  6. KYTRIL [Concomitant]
     Route: 041
  7. LASIX [Concomitant]
     Route: 048
  8. ALDACTONE [Concomitant]
     Route: 048
  9. MYSLEE [Concomitant]
     Route: 048

REACTIONS (3)
  - GASTROINTESTINAL PERFORATION [None]
  - INTESTINAL OBSTRUCTION [None]
  - PANCYTOPENIA [None]
